FAERS Safety Report 17072841 (Version 1)
Quarter: 2019Q4

REPORT INFORMATION
  Report Type: Spontaneous
  Country: MA (occurrence: MA)
  Receive Date: 20191125
  Receipt Date: 20191125
  Transmission Date: 20200122
  Serious: Yes (Death)
  Sender: FDA-Public Use
  Company Number: MA-ALLERGAN-1948099US

PATIENT

DRUGS (1)
  1. URSODEOXYCHOLIC ACID UNK [Suspect]
     Active Substance: URSODIOL
     Indication: CHOLANGITIS SCLEROSING
     Dosage: UNK

REACTIONS (1)
  - Sepsis [Fatal]
